FAERS Safety Report 18213052 (Version 1)
Quarter: 2020Q3

REPORT INFORMATION
  Report Type: Spontaneous
  Country: US (occurrence: US)
  Receive Date: 20200829
  Receipt Date: 20200829
  Transmission Date: 20201103
  Serious: Yes (Life-Threatening, Hospitalization, Disabling, Other)
  Sender: FDA-Public Use
  Company Number: None

PATIENT
  Age: 57 Year
  Sex: Female
  Weight: 67.5 kg

DRUGS (3)
  1. CEFTRIAXONE SODIUM. [Suspect]
     Active Substance: CEFTRIAXONE SODIUM
     Indication: SPINAL DISORDER
     Dosage: ?          OTHER ROUTE:PICC LINE INTO HEART?
     Dates: start: 20200803
  2. CEFTRIAXONE SODIUM. [Suspect]
     Active Substance: CEFTRIAXONE SODIUM
     Indication: OSTEOMYELITIS
     Dosage: ?          OTHER ROUTE:PICC LINE INTO HEART?
     Dates: start: 20200803
  3. CEFTRIAXONE SODIUM. [Suspect]
     Active Substance: CEFTRIAXONE SODIUM
     Indication: ESCHERICHIA INFECTION
     Dosage: ?          OTHER ROUTE:PICC LINE INTO HEART?
     Dates: start: 20200803

REACTIONS (5)
  - Drug monitoring procedure not performed [None]
  - Incorrect dose administered [None]
  - Product administration error [None]
  - Infection [None]
  - Product preparation error [None]

NARRATIVE: CASE EVENT DATE: 20200805
